FAERS Safety Report 13814241 (Version 5)
Quarter: 2020Q4

REPORT INFORMATION
  Report Type: Report from Study
  Country: BR (occurrence: BR)
  Receive Date: 20170731
  Receipt Date: 20201014
  Transmission Date: 20210113
  Serious: Yes (Hospitalization, Other)
  Sender: FDA-Public Use
  Company Number: PHHY2017BR108890

PATIENT
  Sex: Female
  Weight: 82 kg

DRUGS (4)
  1. SANDOSTATIN LAR DEPOT [Suspect]
     Active Substance: OCTREOTIDE ACETATE
     Indication: ACROMEGALY
     Dosage: 20 MG, QMO (ONCE EVERY 28 DAYS)
     Route: 030
     Dates: start: 200601
  2. SANDOSTATIN LAR DEPOT [Suspect]
     Active Substance: OCTREOTIDE ACETATE
     Dosage: 20 MG, EVERY SIX WEEKS
     Route: 030
  3. SANDOSTATIN LAR DEPOT [Suspect]
     Active Substance: OCTREOTIDE ACETATE
     Dosage: (ONCE EVERY 8 WEEKS) (START AT ABOUT ONE YEAR)
     Route: 065
  4. SANDOSTATIN LAR DEPOT [Suspect]
     Active Substance: OCTREOTIDE ACETATE
     Dosage: UNK (ONCE EVERY 6 WEEKS AND STOPPED AFTER ONE YEAR)
     Route: 065

REACTIONS (10)
  - Diabetes mellitus [Recovered/Resolved]
  - Diabetes mellitus inadequate control [Unknown]
  - Pain [Unknown]
  - Headache [Unknown]
  - Thirst [Unknown]
  - Hypertension [Unknown]
  - Weight increased [Unknown]
  - Inappropriate schedule of product administration [Not Recovered/Not Resolved]
  - Fatigue [Unknown]
  - Hormone level abnormal [Unknown]

NARRATIVE: CASE EVENT DATE: 2008
